FAERS Safety Report 22315804 (Version 2)
Quarter: 2023Q2

REPORT INFORMATION
  Report Type: Report from Study
  Country: HR (occurrence: HR)
  Receive Date: 20230512
  Receipt Date: 20230526
  Transmission Date: 20230722
  Serious: Yes (Death)
  Sender: FDA-Public Use
  Company Number: HR-TEVA-2023-HR-2886604

PATIENT
  Age: 60 Year
  Sex: Male

DRUGS (6)
  1. DOXORUBICIN [Suspect]
     Active Substance: DOXORUBICIN
     Indication: Non-Hodgkin^s lymphoma
     Dosage: R-CHOP REGIMEN
     Route: 065
  2. METHYLPREDNISOLONE [Suspect]
     Active Substance: METHYLPREDNISOLONE
     Indication: Non-Hodgkin^s lymphoma
     Dosage: 16 MILLIGRAM DAILY;
     Route: 065
  3. RITUXIMAB [Suspect]
     Active Substance: RITUXIMAB
     Indication: Non-Hodgkin^s lymphoma
     Dosage: R-CHOP REGIMEN
     Route: 065
  4. CYCLOPHOSPHAMIDE [Suspect]
     Active Substance: CYCLOPHOSPHAMIDE
     Indication: Non-Hodgkin^s lymphoma
     Dosage: R-CHOP REGIMEN
     Route: 065
  5. VINCRISTINE [Suspect]
     Active Substance: VINCRISTINE
     Indication: Non-Hodgkin^s lymphoma
     Dosage: R-CHOP REGIMEN
     Route: 065
  6. PREDNISONE [Suspect]
     Active Substance: PREDNISONE
     Indication: Non-Hodgkin^s lymphoma
     Dosage: R-CHOP REGIMEN
     Route: 065

REACTIONS (1)
  - Strongyloidiasis [Fatal]
